FAERS Safety Report 13394488 (Version 1)
Quarter: 2017Q2

REPORT INFORMATION
  Report Type: Report from Study
  Country: CN (occurrence: CN)
  Receive Date: 20170403
  Receipt Date: 20170403
  Transmission Date: 20170830
  Serious: Yes (Hospitalization, Other)
  Sender: FDA-Public Use
  Company Number: CN-BRISTOL-MYERS SQUIBB COMPANY-BMS-2017-027552

PATIENT
  Sex: Male

DRUGS (1)
  1. ENTECAVIR. [Suspect]
     Active Substance: ENTECAVIR
     Indication: CHRONIC HEPATITIS
     Dosage: 0.5 MG, QD
     Route: 048

REACTIONS (2)
  - Hepatic cirrhosis [Recovered/Resolved]
  - High frequency ablation [Unknown]

NARRATIVE: CASE EVENT DATE: 20150320
